FAERS Safety Report 7614124-9 (Version None)
Quarter: 2011Q3

REPORT INFORMATION
  Report Type: 
  Country: None (occurrence: None)
  Receive Date: 20110708
  Receipt Date: 20110624
  Transmission Date: 20111222
  Serious: Yes (Other)
  Sender: FDA-Public Use
  Company Number: 2011-1652

PATIENT
  Age: 45 Year
  Sex: Male

DRUGS (10)
  1. PRILOSEC [Concomitant]
  2. SOMATULINE DEPOT [Suspect]
     Indication: ACROMEGALY
     Dosage: 60 MG (60 MG, 1 IN 28 D), SUBCUTANEOUS
     Route: 058
     Dates: start: 20110211
  3. ASPIRIN [Concomitant]
  4. FENOFIBRATE [Concomitant]
  5. SILODOSIN (ALL OTHER THERAPEUTIC PRODUCTS) [Concomitant]
  6. ASCORBIC ACID [Concomitant]
  7. NASONEX [Concomitant]
  8. MULTIVITAMIN [Concomitant]
  9. NABUMETONE [Concomitant]
  10. LISINOPRIL W/HYDROCHLOROTHIAZIDE (PRINZIDE /00977901/) [Concomitant]

REACTIONS (3)
  - CLUSTER HEADACHE [None]
  - HYPOAESTHESIA [None]
  - PHOTOPSIA [None]
